FAERS Safety Report 22282862 (Version 1)
Quarter: 2023Q2

REPORT INFORMATION
  Report Type: Spontaneous
  Country: CA (occurrence: None)
  Receive Date: 20230504
  Receipt Date: 20230504
  Transmission Date: 20230721
  Serious: Yes (Other)
  Sender: FDA-Public Use
  Company Number: CA-PFIZER INC-202300176653

PATIENT
  Age: 62 Year
  Sex: Female

DRUGS (4)
  1. METHOTREXATE [Suspect]
     Active Substance: METHOTREXATE
     Indication: Rheumatoid arthritis
     Route: 065
  2. CELEBREX [Concomitant]
     Active Substance: CELECOXIB
     Route: 065
     Dates: start: 2003
  3. SULFASALAZINE [Concomitant]
     Active Substance: SULFASALAZINE
     Indication: Rheumatoid arthritis
     Route: 065
     Dates: start: 20220613
  4. SULFASALAZINE [Concomitant]
     Active Substance: SULFASALAZINE
     Route: 065
     Dates: start: 20220613

REACTIONS (2)
  - Cytopenia [Unknown]
  - Joint swelling [Unknown]

NARRATIVE: CASE EVENT DATE: 20230316
